FAERS Safety Report 22387624 (Version 1)
Quarter: 2023Q2

REPORT INFORMATION
  Report Type: Spontaneous
  Country: US (occurrence: US)
  Receive Date: 20230531
  Receipt Date: 20230531
  Transmission Date: 20230722
  Serious: No
  Sender: FDA-Public Use
  Company Number: US-VIIV HEALTHCARE LIMITED-US2023072342

PATIENT
  Age: 38 Year
  Sex: Male
  Weight: 99.79 kg

DRUGS (1)
  1. JULUCA [Suspect]
     Active Substance: DOLUTEGRAVIR SODIUM\RILPIVIRINE HYDROCHLORIDE
     Indication: HIV infection
     Dosage: 1 DF, QD

REACTIONS (8)
  - Morning sickness [Unknown]
  - Vomiting [Unknown]
  - Lethargy [Unknown]
  - Dizziness [Unknown]
  - Viral load increased [Unknown]
  - T-lymphocyte count decreased [Unknown]
  - Gastric disorder [Unknown]
  - Product dose omission issue [Unknown]
